FAERS Safety Report 16055724 (Version 1)
Quarter: 2019Q1

REPORT INFORMATION
  Report Type: Spontaneous
  Country: US (occurrence: US)
  Receive Date: 20190208
  Receipt Date: 20190208
  Transmission Date: 20190418
  Serious: No
  Sender: FDA-Public Use
  Company Number: None

PATIENT
  Age: 70 Year
  Sex: Female

DRUGS (1)
  1. REPATHA [Suspect]
     Active Substance: EVOLOCUMAB
     Indication: HYPERLIPIDAEMIA
     Dates: start: 20190105, end: 20190202

REACTIONS (5)
  - Rash generalised [None]
  - Rhinorrhoea [None]
  - Drug hypersensitivity [None]
  - Injection site pain [None]
  - Pruritus [None]

NARRATIVE: CASE EVENT DATE: 20190202
